FAERS Safety Report 4923144-4 (Version None)
Quarter: 2006Q1

REPORT INFORMATION
  Report Type: 
  Country: None (occurrence: None)
  Receive Date: 20060113
  Receipt Date: 20041230
  Transmission Date: 20060701
  Serious: Yes (Other)
  Sender: FDA-Public Use
  Company Number: HQWYE199016JUL04

PATIENT
  Age: 44 Year
  Sex: Female
  Weight: 81.27 kg

DRUGS (4)
  1. PREMPRO [Suspect]
     Indication: MENOPAUSE
     Dates: start: 20010101
  2. ACTIVELLA [Suspect]
     Indication: MENOPAUSE
     Dosage: ORAL
     Route: 048
     Dates: start: 20020101
  3. ESTRATEST [Suspect]
     Indication: MENOPAUSE
     Dates: start: 19900101
  4. MEDROXYPROGESTERONE [Suspect]

REACTIONS (2)
  - BREAST CANCER [None]
  - MYOCARDIAL INFARCTION [None]
